FAERS Safety Report 4522410-4 (Version None)
Quarter: 2004Q4

REPORT INFORMATION
  Report Type: 
  Country: None (occurrence: None)
  Receive Date: 20041207
  Receipt Date: 20041125
  Transmission Date: 20050328
  Serious: Yes (Hospitalization)
  Sender: FDA-Public Use
  Company Number: 2004098804

PATIENT
  Age: 74 Year
  Sex: Female

DRUGS (3)
  1. NORVASC [Suspect]
     Indication: ILL-DEFINED DISORDER
     Dosage: ORAL
     Route: 048
  2. PRAVISTATIN SODIUM (PRAVASTATIN SODIUM) [Concomitant]
  3. ALL OTHER THERAPEUTIC PRODUCTS(ALL OTHER THERAPEUTIC PRODUCTS) [Concomitant]

REACTIONS (1)
  - INTERSTITIAL LUNG DISEASE [None]
